FAERS Safety Report 20896367 (Version 4)
Quarter: 2023Q1

REPORT INFORMATION
  Report Type: Spontaneous
  Country: TR (occurrence: TR)
  Receive Date: 20220531
  Receipt Date: 20230216
  Transmission Date: 20230418
  Serious: Yes (Other)
  Sender: FDA-Public Use
  Company Number: TR-PFIZER INC-202200755221

PATIENT
  Age: 68 Year
  Sex: Male

DRUGS (5)
  1. METHYLPREDNISOLONE ACETATE [Suspect]
     Active Substance: METHYLPREDNISOLONE ACETATE
     Indication: Dermatitis bullous
     Dosage: 96 MG, DAILY
  2. METHYLPREDNISOLONE ACETATE [Suspect]
     Active Substance: METHYLPREDNISOLONE ACETATE
     Dosage: 80 MG, DAILY
  3. MYCOPHENOLATE SODIUM [Suspect]
     Active Substance: MYCOPHENOLATE SODIUM
     Indication: Dermatitis bullous
     Dosage: 1440 MG, DAILY
  4. MYCOPHENOLATE SODIUM [Suspect]
     Active Substance: MYCOPHENOLATE SODIUM
     Dosage: 1080 MG, DAILY
  5. ENTECAVIR [Concomitant]
     Active Substance: ENTECAVIR
     Indication: Dermatitis bullous
     Dosage: UNK

REACTIONS (6)
  - Leukopenia [Unknown]
  - Thrombocytopenia [Not Recovered/Not Resolved]
  - Mood altered [Unknown]
  - Depressive symptom [Unknown]
  - Blood creatinine increased [Unknown]
  - Off label use [Unknown]
